FAERS Safety Report 17641954 (Version 1)
Quarter: 2020Q2

REPORT INFORMATION
  Report Type: Spontaneous
  Country: GB (occurrence: GB)
  Receive Date: 20200408
  Receipt Date: 20200408
  Transmission Date: 20200713
  Serious: Yes (Other)
  Sender: FDA-Public Use
  Company Number: GB-GLAXOSMITHKLINE-GB2020EME024025

PATIENT
  Age: 67 Year
  Sex: Female

DRUGS (3)
  1. LAMICTAL [Suspect]
     Active Substance: LAMOTRIGINE
     Dosage: 25 MG, BID
  2. LAMICTAL [Suspect]
     Active Substance: LAMOTRIGINE
     Indication: EPILEPSY
     Dosage: 300 MG, BID
  3. LAMICTAL [Suspect]
     Active Substance: LAMOTRIGINE
     Dosage: UNK25 MG IN THE MORNING AND 50 MG AT NIGHT
     Dates: start: 201909

REACTIONS (9)
  - Tremor [Recovered/Resolved]
  - Altered state of consciousness [Recovering/Resolving]
  - Seizure [Recovering/Resolving]
  - Disease recurrence [Not Recovered/Not Resolved]
  - Loss of personal independence in daily activities [Unknown]
  - Emotional poverty [Recovering/Resolving]
  - Housebound [Unknown]
  - Anxiety [Recovering/Resolving]
  - Pruritus [Not Recovered/Not Resolved]
